FAERS Safety Report 7819949-2 (Version None)
Quarter: 2011Q4

REPORT INFORMATION
  Report Type: 
  Country: None (occurrence: None)
  Receive Date: 20111018
  Receipt Date: 20110127
  Transmission Date: 20120403
  Serious: No
  Sender: FDA-Public Use
  Company Number: US-ASTRAZENECA-2011SE04760

PATIENT
  Sex: Female

DRUGS (16)
  1. SYMBICORT [Suspect]
     Dosage: 80/4.5 MCG TWO TIMES A DAY
     Route: 055
  2. LISINOPRIL [Concomitant]
  3. MULTI-VITAMIN [Concomitant]
  4. CINNAMON [Concomitant]
  5. FERROUS SULFATE TAB [Concomitant]
  6. DANDELION ROOT [Concomitant]
  7. FUROSEMIDE [Concomitant]
     Dosage: TWO TIMES A DAY
  8. OMEPRAZOLE [Concomitant]
  9. COZAAR [Concomitant]
  10. STOOL SOFTENER [Concomitant]
     Dosage: TWO TIMES A DAY
  11. LABETALOL HCL [Concomitant]
     Dosage: TWO TIMES A DAY
  12. SYMBICORT [Suspect]
     Indication: ASTHMA
     Dosage: 160/4.5 MCG
     Route: 055
     Dates: start: 20101101
  13. COQ10 [Concomitant]
  14. GLIPIZIDE [Concomitant]
  15. GARLIC [Concomitant]
  16. ACIDOPHILUS [Concomitant]

REACTIONS (4)
  - NASOPHARYNGITIS [None]
  - SNEEZING [None]
  - COUGH [None]
  - CIRCUMSTANCE OR INFORMATION CAPABLE OF LEADING TO MEDICATION ERROR [None]
